FAERS Safety Report 25137723 (Version 1)
Quarter: 2025Q1

REPORT INFORMATION
  Report Type: Spontaneous
  Country: US (occurrence: US)
  Receive Date: 20250329
  Receipt Date: 20250329
  Transmission Date: 20250408
  Serious: Yes (Death, Other)
  Sender: MACLEODS
  Company Number: US-MLMSERVICE-20250317-PI446063-00201-2

PATIENT

DRUGS (1)
  1. LIDOCAINE [Suspect]
     Active Substance: LIDOCAINE
     Indication: Electrocardiogram QT prolonged
     Route: 065

REACTIONS (2)
  - Ventricular tachycardia [Fatal]
  - Seizure [Unknown]
